FAERS Safety Report 18191556 (Version 6)
Quarter: 2021Q1

REPORT INFORMATION
  Report Type: Report from Study
  Country: None (occurrence: LU)
  Receive Date: 20200824
  Receipt Date: 20210217
  Transmission Date: 20210419
  Serious: Yes (Death, Hospitalization)
  Sender: FDA-Public Use
  Company Number: LU-ABBVIE-20K-098-3536582-00

PATIENT
  Age: 85 Year
  Sex: Male
  Weight: 80 kg

DRUGS (8)
  1. DUODOPA [Suspect]
     Active Substance: CARBIDOPA\LEVODOPA
     Dosage: MD=5.5ML, CD=1.8ML/HR DURING 16HRS, ED=1.2ML
     Route: 050
     Dates: start: 20191213, end: 20191216
  2. DUODOPA [Suspect]
     Active Substance: CARBIDOPA\LEVODOPA
     Dosage: MD=6.5ML, CD=2.3ML/HR DURING 16HRS, ED=1.5ML
     Route: 050
     Dates: start: 20191217, end: 20191218
  3. DUODOPA [Suspect]
     Active Substance: CARBIDOPA\LEVODOPA
     Dosage: MD=7ML, CD=2.5ML/HR DURING 16HRS, ED=1.5ML
     Route: 050
     Dates: start: 20191218, end: 202008
  4. PROLOPA [Concomitant]
     Active Substance: BENSERAZIDE\LEVODOPA
     Route: 048
  5. DUODOPA [Suspect]
     Active Substance: CARBIDOPA\LEVODOPA
     Indication: PARKINSON^S DISEASE
     Dosage: UNKNOWN DOSAGES
     Route: 050
     Dates: start: 20191209, end: 20191213
  6. DUODOPA [Suspect]
     Active Substance: CARBIDOPA\LEVODOPA
     Dosage: MD=6.5ML, CD=2.1ML/HR DURING 16HRS, ED=1.2ML
     Route: 050
     Dates: start: 20191216, end: 20191217
  7. DUODOPA [Suspect]
     Active Substance: CARBIDOPA\LEVODOPA
     Dosage: MD=7ML, CD=2.5ML/HR DURING 16HRS, ED=1.5ML
     Route: 050
     Dates: start: 202009
  8. PROLOPA [Concomitant]
     Active Substance: BENSERAZIDE\LEVODOPA
     Indication: PRODUCT USED FOR UNKNOWN INDICATION
     Route: 048

REACTIONS (6)
  - Dyspnoea [Recovered/Resolved]
  - Death [Fatal]
  - Pneumonia [Unknown]
  - Device occlusion [Recovered/Resolved]
  - Dyspnoea [Recovering/Resolving]
  - Device alarm issue [Recovered/Resolved]

NARRATIVE: CASE EVENT DATE: 2020
